FAERS Safety Report 17722973 (Version 1)
Quarter: 2020Q2

REPORT INFORMATION
  Report Type: Other
  Country: GB (occurrence: GB)
  Receive Date: 20200429
  Receipt Date: 20200429
  Transmission Date: 20200714
  Serious: Yes (Other)
  Sender: FDA-Public Use
  Company Number: GB-STRIDES ARCOLAB LIMITED-2020SP005285

PATIENT
  Age: 64 Year
  Sex: Male

DRUGS (9)
  1. MITOMYCIN. [Suspect]
     Active Substance: MITOMYCIN
     Indication: PROPHYLAXIS
     Dosage: UNK
     Route: 065
  2. HEALON GV [Suspect]
     Active Substance: HYALURONATE SODIUM
     Indication: PRODUCT USED FOR UNKNOWN INDICATION
     Dosage: UNK
     Route: 031
  3. PREDNISOLONE. [Suspect]
     Active Substance: PREDNISOLONE
     Indication: PRODUCT USED FOR UNKNOWN INDICATION
     Dosage: 1 PERCENT, QID, DROP (4% PER DAY)
     Route: 065
  4. CHLORAMPHENICOL [Suspect]
     Active Substance: CHLORAMPHENICOL
     Indication: PRODUCT USED FOR UNKNOWN INDICATION
     Dosage: 0.5 PERCENT, QID, DROP (2% PER DAY)
     Route: 065
  5. HYALURONIDASE [Suspect]
     Active Substance: HYALURONIDASE
     Indication: LOCAL ANAESTHESIA
     Dosage: UNK
     Route: 065
  6. LIDOCAINE. [Suspect]
     Active Substance: LIDOCAINE
     Indication: LOCAL ANAESTHESIA
     Dosage: UNK, 3-5 MLS
     Route: 065
  7. MITOMYCIN. [Suspect]
     Active Substance: MITOMYCIN
     Indication: SCAR
     Dosage: UNK, 0.1 % IN 0.1 ML PER STENT INSERTION, FOLLOWING ADEQUATE ANAESTHESIA
     Route: 057
  8. CEFUROXIME. [Suspect]
     Active Substance: CEFUROXIME
     Indication: PRODUCT USED FOR UNKNOWN INDICATION
     Dosage: 0.1 MILLILITER, UNKNOWN (0.1 ML (3 MG IN 0.3 MLS))
     Route: 031
  9. DEXAMETHASONE. [Suspect]
     Active Substance: DEXAMETHASONE
     Indication: PRODUCT USED FOR UNKNOWN INDICATION
     Dosage: 1 MILLILITER, UNKNOWN,1 ML (3.3 MG IN 1 ML)
     Route: 057

REACTIONS (2)
  - Device dislocation [Recovered/Resolved]
  - Foreign body in eye [Recovered/Resolved]
